FAERS Safety Report 8836301 (Version 4)
Quarter: 2012Q4

REPORT INFORMATION
  Report Type: Report from Study
  Country: CA (occurrence: CA)
  Receive Date: 20121011
  Receipt Date: 20121115
  Transmission Date: 20130627
  Serious: Yes (Hospitalization, Other)
  Sender: FDA-Public Use
  Company Number: CA-ABBOTT-12P-028-0991623-00

PATIENT
  Sex: Female

DRUGS (2)
  1. HUMIRA [Suspect]
     Indication: CROHN^S DISEASE
     Route: 058
     Dates: start: 201205, end: 20121005
  2. IMURAN [Suspect]
     Dates: start: 2006, end: 20121002

REACTIONS (5)
  - Colitis [Unknown]
  - Crohn^s disease [Not Recovered/Not Resolved]
  - Pancytopenia [Recovered/Resolved]
  - Infection [Not Recovered/Not Resolved]
  - White blood cell count decreased [Unknown]
